FAERS Safety Report 5447101-7 (Version None)
Quarter: 2007Q3

REPORT INFORMATION
  Report Type: 
  Country: None (occurrence: None)
  Receive Date: 20070809
  Receipt Date: 20070620
  Transmission Date: 20080115
  Serious: No
  Sender: FDA-Public Use
  Company Number: WAES 0706USA04051

PATIENT

DRUGS (1)
  1. ZOLINZA [Suspect]
     Indication: MYCOSIS FUNGOIDES
     Dosage: 40 MG/DAILY/PO
     Route: 048
     Dates: start: 20060101

REACTIONS (3)
  - DYSGEUSIA [None]
  - EATING DISORDER [None]
  - WEIGHT DECREASED [None]
